FAERS Safety Report 8366964-9 (Version None)
Quarter: 2012Q2

REPORT INFORMATION
  Report Type: 
  Country: None (occurrence: None)
  Receive Date: 20120517
  Receipt Date: 20120514
  Transmission Date: 20120825
  Serious: Yes (Other)
  Sender: FDA-Public Use
  Company Number: PHHY2012JP041642

PATIENT
  Age: 45 Year
  Sex: Male

DRUGS (2)
  1. CLOZARIL [Suspect]
     Indication: SCHIZOPHRENIA
     Dosage: 600 MG, DAILY
     Route: 048
  2. CLOZARIL [Suspect]
     Dosage: 150 MG, DAILY
     Route: 048

REACTIONS (2)
  - LIVER DISORDER [None]
  - PSYCHIATRIC SYMPTOM [None]
